FAERS Safety Report 24248634 (Version 1)
Quarter: 2024Q3

REPORT INFORMATION
  Report Type: Spontaneous
  Country: US (occurrence: US)
  Receive Date: 20240826
  Receipt Date: 20240826
  Transmission Date: 20241017
  Serious: No
  Sender: PFIZER
  Company Number: US-PFIZER INC-PV202400108850

PATIENT
  Age: 63 Year
  Sex: Female

DRUGS (1)
  1. ZAVZPRET [Suspect]
     Active Substance: ZAVEGEPANT HYDROCHLORIDE
     Indication: Migraine
     Dosage: 1 DF, AS NEEDED (1 SPRAY IN 1 NOSTRIL; MAX 1 SPRAY PER 24 HOURS)
     Route: 045

REACTIONS (1)
  - Drug ineffective [Unknown]
